FAERS Safety Report 18912921 (Version 15)
Quarter: 2021Q3

REPORT INFORMATION
  Report Type: Spontaneous
  Country: GB (occurrence: GB)
  Receive Date: 20210219
  Receipt Date: 20210812
  Transmission Date: 20211014
  Serious: Yes (Hospitalization, Other)
  Sender: FDA-Public Use
  Company Number: GB-SUN PHARMACEUTICAL INDUSTRIES LTD-2020RR-274034

PATIENT
  Age: 57 Year
  Sex: Female

DRUGS (140)
  1. PERJETA [Suspect]
     Active Substance: PERTUZUMAB
     Dosage: 840 MILLIGRAMS, Q3W (LOADING DOSE)
     Route: 042
     Dates: start: 20150507, end: 20150507
  2. NAVELBINE [Suspect]
     Active Substance: VINORELBINE TARTRATE
     Dosage: 100 MILLIGRAM, UNK, 100 MG, UNK
     Route: 048
     Dates: start: 20161028, end: 20161028
  3. TAXOTERE [Suspect]
     Active Substance: DOCETAXEL
     Indication: BREAST CANCER
     Dosage: 130 MILLIGRAM, UNK, EVERY 3 WEEKS
     Route: 042
  4. HERCEPTIN [Suspect]
     Active Substance: TRASTUZUMAB
     Dosage: 357 MG, EVERY 3 WEEKS
     Route: 042
     Dates: start: 20150527, end: 20160630
  5. AROMASIN [Suspect]
     Active Substance: EXEMESTANE
     Dosage: 25 MILLIGRAM, DAILY
     Route: 048
     Dates: start: 20151021
  6. LEVETIRACETAM. [Concomitant]
     Active Substance: LEVETIRACETAM
     Dosage: BID (2/DAY)
     Route: 048
     Dates: start: 20160727, end: 20160810
  7. FLUCONAZOLE. [Concomitant]
     Active Substance: FLUCONAZOLE
     Indication: PRODUCT USED FOR UNKNOWN INDICATION
     Dosage: UNK, UNKNOWN ()
     Route: 048
     Dates: start: 20171004, end: 20171004
  8. KEPPRA [Concomitant]
     Active Substance: LEVETIRACETAM
     Indication: MUSCLE TWITCHING
     Dosage: UNK UNK, BID (2/DAY) ()
     Route: 048
     Dates: start: 20160727, end: 20160810
  9. APREPITANT. [Concomitant]
     Active Substance: APREPITANT
     Indication: PROPHYLAXIS
     Dosage: UNK UNK, UNKNOWN ()
     Route: 065
     Dates: start: 20150527, end: 20150905
  10. IBUPROFEN. [Concomitant]
     Active Substance: IBUPROFEN
     Indication: HEADACHE
     Dosage: 1 DOSAGE FORM, DAILY, 1 TABLET
     Route: 048
     Dates: start: 20170201
  11. VINORELBINE [Suspect]
     Active Substance: VINORELBINE TARTRATE
     Indication: PRODUCT USED FOR UNKNOWN INDICATION
  12. SENNA [Concomitant]
     Active Substance: SENNA LEAF\SENNOSIDES\SENNOSIDES A AND B
     Indication: PRODUCT USED FOR UNKNOWN INDICATION
  13. PERTUZUMAB. [Suspect]
     Active Substance: PERTUZUMAB
     Indication: PRODUCT USED FOR UNKNOWN INDICATION
  14. PERJETA [Suspect]
     Active Substance: PERTUZUMAB
     Dosage: 2520 MILLIGRAM, WEEKLY, LOADING DOSE
     Route: 042
     Dates: start: 20150507, end: 20150507
  15. XELODA [Suspect]
     Active Substance: CAPECITABINE
     Dosage: 1650 MILLIGRAM, UNK
     Route: 048
     Dates: start: 20150901
  16. TAXOTERE [Suspect]
     Active Substance: DOCETAXEL
     Dosage: 130 MILLIGRAM, UNK, EVERY 3 WEEKS
     Route: 042
     Dates: start: 20161111
  17. HERCEPTIN [Suspect]
     Active Substance: TRASTUZUMAB
     Indication: BREAST CANCER
     Dosage: LOADING DOSE 3/WEEK (CV)
     Route: 042
  18. DEXAMETHASONE. [Concomitant]
     Active Substance: DEXAMETHASONE
     Dosage: 1 DOSAGE FORM, DAILY, 1 DF, QD (1/DAY)
     Route: 048
     Dates: start: 20161123, end: 20161130
  19. DEXAMETHASONE. [Concomitant]
     Active Substance: DEXAMETHASONE
     Dosage: 2 MILLIGRAM, 1 DF, QD (1/DAY)
     Route: 048
     Dates: start: 20161004, end: 20161123
  20. METOCLOPRAMIDE. [Concomitant]
     Active Substance: METOCLOPRAMIDE
     Indication: PRODUCT USED FOR UNKNOWN INDICATION
     Dosage: UNK, BID (2/DAY) ()
     Route: 048
     Dates: start: 20170301
  21. METOCLOPRAMIDE. [Concomitant]
     Active Substance: METOCLOPRAMIDE
     Dosage: 2 DOSAGE FORM, DAILY
     Route: 048
     Dates: start: 20170815
  22. METOCLOPRAMIDE. [Concomitant]
     Active Substance: METOCLOPRAMIDE
     Dosage: SUBSEQUENT DOSE RECEIVED ON 18/NOV/2016
     Route: 048
     Dates: start: 20170301
  23. CYCLIZINE [Concomitant]
     Active Substance: CYCLIZINE
     Indication: PROPHYLAXIS
     Dosage: 150 MILLIGRAM, DAILY, 150 MG, QD (1/DAY)
     Route: 048
     Dates: start: 20150603, end: 20150715
  24. LACTULOSE. [Concomitant]
     Active Substance: LACTULOSE
     Indication: NEURALGIA
     Dosage: UNK
     Route: 048
  25. ONDANSETRON [Concomitant]
     Active Substance: ONDANSETRON
     Dosage: UNK, UNKNOWN ()
     Route: 048
     Dates: start: 20161111
  26. CALCIUM GLUCONATE. [Concomitant]
     Active Substance: CALCIUM GLUCONATE
     Indication: PRODUCT USED FOR UNKNOWN INDICATION
     Dosage: UNK, UNKNOWN ()
     Route: 065
     Dates: end: 20170201
  27. ANASTROZOLE. [Suspect]
     Active Substance: ANASTROZOLE
     Indication: PRODUCT USED FOR UNKNOWN INDICATION
  28. VINORELBINE [Suspect]
     Active Substance: VINORELBINE TARTRATE
     Indication: PRODUCT USED FOR UNKNOWN INDICATION
     Dosage: 100 MILLIGRAM, DAILY
     Route: 065
     Dates: start: 20161111
  29. ANASTROZOLE. [Suspect]
     Active Substance: ANASTROZOLE
     Indication: PRODUCT USED FOR UNKNOWN INDICATION
  30. VINORELBINE [Suspect]
     Active Substance: VINORELBINE TARTRATE
     Indication: PRODUCT USED FOR UNKNOWN INDICATION
  31. PERJETA [Suspect]
     Active Substance: PERTUZUMAB
     Indication: BREAST CANCER
     Dosage: 420 MILLIGRAM, 1 DOSE/3 WEEKS, EVERY 3 WEEKS
     Route: 042
  32. HERCEPTIN [Suspect]
     Active Substance: TRASTUZUMAB
     Dosage: 357 MILLIGRAM/3 WEEKS
     Route: 042
     Dates: start: 20170620
  33. XELODA [Suspect]
     Active Substance: CAPECITABINE
     Dosage: 3300 MG, UNK
     Route: 048
     Dates: start: 20160914
  34. TAXOTERE [Suspect]
     Active Substance: DOCETAXEL
     Dosage: 100 MILLIGRAMS, DAILY
     Route: 042
     Dates: start: 20161111
  35. AROMASIN [Suspect]
     Active Substance: EXEMESTANE
     Dosage: 1 DOSAGE FORM, DAILY
     Route: 048
     Dates: start: 201607, end: 20160921
  36. DOCETAXEL. [Suspect]
     Active Substance: DOCETAXEL
     Indication: BREAST CANCER
     Dosage: 130 MILLIGRAM, 1 DOSE/3 WEEKS
     Route: 042
  37. CODEINE [Concomitant]
     Active Substance: CODEINE
     Indication: PRODUCT USED FOR UNKNOWN INDICATION
     Dosage: UNK, UNKNOWN ()
     Route: 048
     Dates: start: 20150603, end: 20150715
  38. DEXAMETHASONE. [Concomitant]
     Active Substance: DEXAMETHASONE
     Dosage: 2 MG, UNK
     Route: 065
     Dates: start: 20161014
  39. LEVETIRACETAM. [Concomitant]
     Active Substance: LEVETIRACETAM
     Dosage: BID
     Route: 048
     Dates: start: 20160811, end: 20161027
  40. BISOPROLOL [Concomitant]
     Active Substance: BISOPROLOL
     Indication: PALPITATIONS
     Dosage: UNK
     Route: 048
     Dates: start: 20160602, end: 20171027
  41. METOCLOPRAMIDE. [Concomitant]
     Active Substance: METOCLOPRAMIDE
     Dosage: SUBSEQUENT DOSE RECEIVED ON 18/NOV/2016 ()
     Route: 048
     Dates: start: 20150506, end: 2016
  42. METOCLOPRAMIDE. [Concomitant]
     Active Substance: METOCLOPRAMIDE
     Indication: PRODUCT USED FOR UNKNOWN INDICATION
     Dosage: BID
     Route: 042
     Dates: start: 20150506, end: 20150903
  43. CYCLIZINE [Concomitant]
     Active Substance: CYCLIZINE
     Dosage: 50 MILLIGRAM
     Route: 048
     Dates: start: 20150603
  44. ANASTROZOLE. [Suspect]
     Active Substance: ANASTROZOLE
     Indication: PRODUCT USED FOR UNKNOWN INDICATION
  45. VINORELBINE [Suspect]
     Active Substance: VINORELBINE TARTRATE
     Indication: PRODUCT USED FOR UNKNOWN INDICATION
  46. VINORELBINE [Suspect]
     Active Substance: VINORELBINE TARTRATE
     Dosage: 100 MILLIGRAM, DAILY
     Route: 048
     Dates: start: 20161028, end: 20161028
  47. TRASTUZUMAB. [Suspect]
     Active Substance: TRASTUZUMAB
     Indication: PRODUCT USED FOR UNKNOWN INDICATION
     Dosage: UNK
     Route: 065
  48. PERJETA [Suspect]
     Active Substance: PERTUZUMAB
     Dosage: 357 MILLIGRAM, WEEKLY
     Route: 042
     Dates: start: 20150527, end: 20160630
  49. XELODA [Suspect]
     Active Substance: CAPECITABINE
     Dosage: 3300 MILLIGRAM, DAILY
     Route: 048
  50. DEXAMETHASONE. [Concomitant]
     Active Substance: DEXAMETHASONE
     Dosage: 2 MILLIGRAM, UNK
     Route: 048
     Dates: start: 20150504, end: 20150904
  51. DEXAMETHASONE. [Concomitant]
     Active Substance: DEXAMETHASONE
     Dosage: 1 DOSAGE FORM, DAILY, 1 DF, QD (1/DAY)
     Route: 048
     Dates: start: 20161130, end: 20161201
  52. DEXAMETHASONE. [Concomitant]
     Active Substance: DEXAMETHASONE
     Dosage: 8 MILLIGRAM
     Route: 048
     Dates: start: 20150504, end: 20150904
  53. METOCLOPRAMIDE. [Concomitant]
     Active Substance: METOCLOPRAMIDE
     Dosage: 2 DOSAGE FORM, DAILY, 2 DF, QD (1/DAY). UNTIL 2017
     Route: 048
     Dates: start: 20170815
  54. METOCLOPRAMIDE. [Concomitant]
     Active Substance: METOCLOPRAMIDE
     Dosage: UNK
     Route: 065
  55. BECLOMETASONE [Concomitant]
     Active Substance: BECLOMETHASONE DIPROPIONATE
     Indication: WHEEZING
     Dosage: UNK, UNKNOWN ()
     Route: 050
     Dates: end: 20160108
  56. CODEINE [Concomitant]
     Active Substance: CODEINE
     Indication: DIARRHOEA
     Dosage: UNK, UNKNOWN ()
     Route: 048
  57. PARACETAMOL [Concomitant]
     Active Substance: ACETAMINOPHEN
     Indication: HEADACHE
     Dosage: UNK, UNKNOWN ()
     Route: 048
     Dates: start: 20160629, end: 20171027
  58. LACTULOSE. [Concomitant]
     Active Substance: LACTULOSE
     Dosage: UNK
     Route: 048
     Dates: start: 20161221, end: 20171021
  59. SPIRONOLACTONE. [Concomitant]
     Active Substance: SPIRONOLACTONE
     Indication: PALPITATIONS
     Dosage: UNK
     Route: 048
     Dates: start: 20160602, end: 20171027
  60. VENTOLIN [Concomitant]
     Active Substance: ALBUTEROL SULFATE
     Indication: WHEEZING
     Dosage: UNK, UNKNOWN ()
     Route: 065
     Dates: start: 20170621
  61. CASSIA [Concomitant]
     Indication: CONSTIPATION
     Dosage: UNK, UNKNOWN ()
     Route: 048
     Dates: start: 20161221, end: 20170327
  62. LOSARTAN. [Concomitant]
     Active Substance: LOSARTAN
     Dosage: 50 MG, UNK
     Route: 048
     Dates: start: 20160602, end: 20171027
  63. VINORELBINE [Suspect]
     Active Substance: VINORELBINE TARTRATE
     Dosage: 100 MILLIGRAM, DAILY
     Route: 048
     Dates: start: 20160901, end: 20161028
  64. SENNA ALEXANDRINA [Concomitant]
     Active Substance: SENNA LEAF
     Indication: PRODUCT USED FOR UNKNOWN INDICATION
  65. ANASTROZOLE. [Suspect]
     Active Substance: ANASTROZOLE
     Indication: PRODUCT USED FOR UNKNOWN INDICATION
     Dosage: 1 MILLIGRAM, DAILY, 1 MG, QD (1/DAY)
     Route: 048
  66. PERJETA [Suspect]
     Active Substance: PERTUZUMAB
     Dosage: 2520 MILLIGRAM, DAILY
     Route: 042
     Dates: start: 20150507, end: 20150507
  67. TRASTUZUMAB EMTANSINE [Suspect]
     Active Substance: ADO-TRASTUZUMAB EMTANSINE
     Indication: BREAST CANCER
     Dosage: 224 MILLIGRAM, UNK EVERY 3 WEEKS
     Route: 042
  68. TRASTUZUMAB EMTANSINE [Suspect]
     Active Substance: ADO-TRASTUZUMAB EMTANSINE
     Dosage: 462 MILLIGRAM, WEEKLY
     Route: 042
     Dates: start: 20150506, end: 20150506
  69. HERCEPTIN [Suspect]
     Active Substance: TRASTUZUMAB
     Dosage: 1071 MILLIGRAM, WEEKLY, 357 MG, EVERY 3 WEEKS
     Route: 042
     Dates: start: 20150527, end: 20160630
  70. HERCEPTIN [Suspect]
     Active Substance: TRASTUZUMAB
     Dosage: 357 MILLIGRAM, WEEKLY
     Route: 042
     Dates: start: 20160527, end: 20160630
  71. NAVELBINE [Suspect]
     Active Substance: VINORELBINE TARTRATE
     Indication: BREAST CANCER
     Dosage: 100 MILLIGRAM, UNK, 100 UNK, UNK
     Route: 048
  72. NAVELBINE [Suspect]
     Active Substance: VINORELBINE TARTRATE
     Dosage: 100 MILLIGRAM, DAILY, 100 MG, QD (1/DAY)
     Route: 048
     Dates: start: 20161111
  73. AROMASIN [Suspect]
     Active Substance: EXEMESTANE
     Dosage: 25 MG, QD (1/DAY)
     Route: 048
     Dates: start: 20150328
  74. DEXAMETHASONE. [Concomitant]
     Active Substance: DEXAMETHASONE
     Dosage: 1 DOSAGE FORM, DAILY, 1 DF, QD (1/DAY)
     Route: 048
     Dates: start: 20170216, end: 20170830
  75. DEXAMETHASONE. [Concomitant]
     Active Substance: DEXAMETHASONE
     Dosage: 2 MG, UNKNOWN
     Route: 048
     Dates: start: 20160713, end: 20161004
  76. DEXAMETHASONE. [Concomitant]
     Active Substance: DEXAMETHASONE
     Dosage: 1 DOSAGE FORM, DAILY, 1 DF, QD (1/DAY)
     Route: 048
     Dates: start: 201612, end: 20170510
  77. DEXAMETHASONE. [Concomitant]
     Active Substance: DEXAMETHASONE
     Dosage: 1 DOSAGE FORM, QD, 1 DF, QD (1/DAY)
     Route: 048
     Dates: start: 20160713
  78. KEPPRA [Concomitant]
     Active Substance: LEVETIRACETAM
     Dosage: UNK UNK, BID (2/DAY) ()
     Route: 048
     Dates: start: 20160811, end: 20161027
  79. METOCLOPRAMIDE. [Concomitant]
     Active Substance: METOCLOPRAMIDE
     Dosage: UNK, UNKNOWN ()
     Route: 048
  80. PEGFILGRASTIM [Concomitant]
     Active Substance: PEGFILGRASTIM
     Indication: PRODUCT USED FOR UNKNOWN INDICATION
     Dosage: UNK, UNKNOWN ()
     Route: 058
     Dates: start: 20150506, end: 20150903
  81. RAMIPRIL. [Concomitant]
     Active Substance: RAMIPRIL
     Indication: PALPITATIONS
     Dosage: 5 MILLIGRAM, DAILY, 5 MG, QD (1/DAY)
     Route: 048
     Dates: start: 20160308, end: 20160602
  82. TRIMETHOPRIM. [Concomitant]
     Active Substance: TRIMETHOPRIM
     Indication: URINARY TRACT INFECTION
     Dosage: UNK, UNKNOWN ()
     Route: 048
     Dates: start: 20170209, end: 20170216
  83. AMOXICILLIN. [Concomitant]
     Active Substance: AMOXICILLIN
     Indication: OROPHARYNGEAL PAIN
     Dosage: 3 DOSAGE FORM, DAILY, 3 DF,  TID (3/DAY)
     Route: 048
     Dates: start: 20151104, end: 20151111
  84. LACTULOSE. [Concomitant]
     Active Substance: LACTULOSE
     Dosage: UNK
     Route: 048
     Dates: start: 201603, end: 20171021
  85. SENNA [Concomitant]
     Active Substance: SENNA LEAF\SENNOSIDES\SENNOSIDES A AND B
     Indication: PRODUCT USED FOR UNKNOWN INDICATION
  86. SENNA [Concomitant]
     Active Substance: SENNA LEAF\SENNOSIDES\SENNOSIDES A AND B
     Indication: PRODUCT USED FOR UNKNOWN INDICATION
  87. ANASTROZOLE. [Suspect]
     Active Substance: ANASTROZOLE
     Indication: PRODUCT USED FOR UNKNOWN INDICATION
  88. VINORELBINE [Suspect]
     Active Substance: VINORELBINE TARTRATE
     Indication: PRODUCT USED FOR UNKNOWN INDICATION
  89. ANASTROZOLE. [Suspect]
     Active Substance: ANASTROZOLE
     Indication: PRODUCT USED FOR UNKNOWN INDICATION
  90. SENNA [Concomitant]
     Active Substance: SENNA LEAF\SENNOSIDES\SENNOSIDES A AND B
     Indication: PRODUCT USED FOR UNKNOWN INDICATION
  91. CORSODYL [Concomitant]
     Active Substance: CHLORHEXIDINE GLUCONATE
     Indication: MUCOSAL INFLAMMATION
     Dosage: UNK, PRN 1 MOUTH WASH AS NEEDED ()
     Route: 048
     Dates: start: 20150514, end: 20150715
  92. HYDROCORTISONE. [Concomitant]
     Active Substance: HYDROCORTISONE
     Indication: RASH
     Dosage: UNK,LOTION APPLICATION ()
     Route: 061
  93. FLUCLOXACILLIN [Concomitant]
     Active Substance: FLUCLOXACILLIN
     Indication: NAIL INFECTION
     Dosage: 250 MILLIGRAM, TID
     Route: 048
     Dates: start: 20150603, end: 20150610
  94. FLUCLOXACILLIN [Concomitant]
     Active Substance: FLUCLOXACILLIN
     Dosage: 750 MILLIGRAM, QD
     Route: 048
  95. AROMASIN [Suspect]
     Active Substance: EXEMESTANE
     Dosage: 25 MG, UNK
     Route: 048
     Dates: start: 20090921
  96. DEXAMETHASONE. [Concomitant]
     Active Substance: DEXAMETHASONE
     Indication: PREMEDICATION
     Dosage: 1 UNK
     Route: 048
     Dates: start: 20160713
  97. DEXAMETHASONE. [Concomitant]
     Active Substance: DEXAMETHASONE
     Dosage: 1 DOSAGE FORM, DAILY, 1 DF, QD (1/DAY)
     Route: 048
     Dates: start: 201607, end: 20160921
  98. QUININE SULFATE. [Concomitant]
     Active Substance: QUININE SULFATE
     Indication: MUSCLE SPASMS
     Dosage: 200 MG, UNK
     Route: 048
     Dates: start: 20161123, end: 20171027
  99. NITROFURANTOIN. [Concomitant]
     Active Substance: NITROFURANTOIN
     Indication: PRODUCT USED FOR UNKNOWN INDICATION
     Dosage: UNK, UNKNOWN ()
     Route: 065
     Dates: start: 20170621, end: 20170623
  100. RAMIPRIL. [Concomitant]
     Active Substance: RAMIPRIL
     Indication: COUGH
     Dosage: 435 MILLIGRAM, UNK
     Route: 065
  101. SENNA [Concomitant]
     Active Substance: SENNA LEAF\SENNOSIDES\SENNOSIDES A AND B
     Indication: CONSTIPATION
     Dosage: UNK, UNKNOWN ()
     Route: 048
     Dates: start: 20161221, end: 20170327
  102. LACTULOSE. [Concomitant]
     Active Substance: LACTULOSE
     Dosage: UNK
     Route: 048
     Dates: start: 20170201, end: 201703
  103. AMITRIPTYLINE [Concomitant]
     Active Substance: AMITRIPTYLINE
     Indication: PRODUCT USED FOR UNKNOWN INDICATION
     Dosage: 10 MILLIGRAM, DAILY
     Route: 048
     Dates: start: 201603
  104. CALAMINE [Concomitant]
     Active Substance: CALAMINE\FERRIC OXIDE RED\ZINC OXIDE
     Indication: PRODUCT USED FOR UNKNOWN INDICATION
     Dosage: UNK UNK, PRN 1 APPLICATION, AS NEEDED ()
     Route: 061
     Dates: start: 20150915
  105. SENNA [Concomitant]
     Active Substance: SENNA LEAF\SENNOSIDES\SENNOSIDES A AND B
     Indication: PRODUCT USED FOR UNKNOWN INDICATION
  106. EXEMESTANE. [Suspect]
     Active Substance: EXEMESTANE
     Indication: PRODUCT USED FOR UNKNOWN INDICATION
  107. ANASTROZOLE. [Suspect]
     Active Substance: ANASTROZOLE
     Indication: PRODUCT USED FOR UNKNOWN INDICATION
  108. ANASTROZOLE. [Suspect]
     Active Substance: ANASTROZOLE
     Indication: PRODUCT USED FOR UNKNOWN INDICATION
  109. ARIMIDEX [Suspect]
     Active Substance: ANASTROZOLE
     Indication: BREAST CANCER
     Dosage: 1 MILLIGRAM, DAILY, 1 MG, QD (1/DAY)
     Route: 048
  110. TRASTUZUMAB EMTANSINE [Suspect]
     Active Substance: ADO-TRASTUZUMAB EMTANSINE
     Dosage: 357 MILLIGRAM, WEEKLY
     Route: 042
     Dates: start: 20150527, end: 20160630
  111. TRASTUZUMAB EMTANSINE [Suspect]
     Active Substance: ADO-TRASTUZUMAB EMTANSINE
     Dosage: 1071 MILLIGRAM, 1 DOSE/3 WEEKS
     Route: 042
     Dates: start: 20150527, end: 20160630
  112. HERCEPTIN [Suspect]
     Active Substance: TRASTUZUMAB
     Indication: BREAST CANCER
     Dosage: 462 MILLIGRAM, UNK, LOADING DOSE 3/WEEK (CV)
     Route: 042
  113. TAXOTERE [Suspect]
     Active Substance: DOCETAXEL
     Dosage: 100 MILLIGRAM, DAILY
     Route: 042
     Dates: start: 20160128, end: 20160128
  114. AROMASIN [Suspect]
     Active Substance: EXEMESTANE
     Indication: BREAST CANCER
     Dosage: 25 MG, QD (1/DAY)
     Route: 048
  115. CODEINE [Concomitant]
     Active Substance: CODEINE
     Indication: DIARRHOEA
     Dosage: UNK
     Route: 048
     Dates: start: 20150603
  116. BISOPROLOL [Concomitant]
     Active Substance: BISOPROLOL
     Dosage: 1.25 MILLIGRAM
     Route: 048
     Dates: start: 20160602
  117. METOCLOPRAMIDE. [Concomitant]
     Active Substance: METOCLOPRAMIDE
     Dosage: 60 MILLIGRAM, DAILY
     Route: 048
     Dates: start: 20170805
  118. LANSOPRAZOLE. [Concomitant]
     Active Substance: LANSOPRAZOLE
     Indication: PROPHYLAXIS
     Dosage: UNK, UNKNOWN ()
     Route: 048
     Dates: start: 20150504, end: 20171027
  119. ACCRETE D3 [Concomitant]
     Active Substance: CALCIUM CARBONATE\CHOLECALCIFEROL
     Indication: PRODUCT USED FOR UNKNOWN INDICATION
     Dosage: UNK, UNKNOWN ()
     Route: 048
     Dates: end: 20171027
  120. LOSARTAN. [Concomitant]
     Active Substance: LOSARTAN
     Indication: PALPITATIONS
     Dosage: 50 MG, UNK
     Route: 048
  121. VINORELBINE [Suspect]
     Active Substance: VINORELBINE TARTRATE
     Dosage: 100 MILLIGRAM, DAILY
     Route: 048
     Dates: start: 20160901, end: 20160930
  122. ANASTROZOLE. [Suspect]
     Active Substance: ANASTROZOLE
     Indication: PRODUCT USED FOR UNKNOWN INDICATION
  123. SENNA [Concomitant]
     Active Substance: SENNA LEAF\SENNOSIDES\SENNOSIDES A AND B
     Indication: PRODUCT USED FOR UNKNOWN INDICATION
  124. CODEINE PHOSPHATE [Concomitant]
     Active Substance: CODEINE PHOSPHATE
     Indication: PRODUCT USED FOR UNKNOWN INDICATION
     Dosage: 60 MILLIGRAM, QD (QDS AS NEEDED)
     Route: 048
     Dates: start: 20150603
  125. LOPERAMIDE [Concomitant]
     Active Substance: LOPERAMIDE
     Indication: PRODUCT USED FOR UNKNOWN INDICATION
  126. QUININE [Concomitant]
     Active Substance: QUININE
     Indication: PRODUCT USED FOR UNKNOWN INDICATION
  127. VINORELBINE TARTRATE. [Suspect]
     Active Substance: VINORELBINE TARTRATE
     Indication: PRODUCT USED FOR UNKNOWN INDICATION
  128. ANASTROZOLE. [Suspect]
     Active Substance: ANASTROZOLE
     Dosage: 1 MILLIGRAM, DAILY
     Route: 048
     Dates: start: 20151021, end: 20171027
  129. XELODA [Suspect]
     Active Substance: CAPECITABINE
     Indication: BREAST CANCER
     Dosage: 3300 MG, UNK
     Route: 048
  130. DEXAMETHASONE. [Concomitant]
     Active Substance: DEXAMETHASONE
     Dosage: 1 DOSAGE FORM, DAILY
     Route: 048
     Dates: start: 20150506, end: 20150717
  131. DEXAMETHASONE. [Concomitant]
     Active Substance: DEXAMETHASONE
     Dosage: 1 DOSAGE FORM, DAILY, 1 DF, QD (1/DAY)
     Route: 048
     Dates: start: 201612, end: 201612
  132. LEVETIRACETAM. [Concomitant]
     Active Substance: LEVETIRACETAM
     Indication: EPILEPSY
     Dosage: 250 MG, UNK
     Route: 048
     Dates: start: 20160727, end: 20171027
  133. COCODAMOL [Concomitant]
     Active Substance: ACETAMINOPHEN\CODEINE PHOSPHATE
     Indication: HEADACHE
     Dosage: UNK, UNKNOWN ()
     Route: 048
     Dates: start: 20160929, end: 20171027
  134. METOCLOPRAMIDE. [Concomitant]
     Active Substance: METOCLOPRAMIDE
     Dosage: 2 DF, QD (1/DAY)
     Route: 048
     Dates: start: 20170301
  135. RAMIPRIL. [Concomitant]
     Active Substance: RAMIPRIL
     Dosage: 5 MILLIGRAM, DAILY
     Route: 065
     Dates: start: 20160308, end: 20161005
  136. ONDANSETRON [Concomitant]
     Active Substance: ONDANSETRON
     Indication: PRODUCT USED FOR UNKNOWN INDICATION
     Dosage: UNK ()
     Route: 048
     Dates: start: 20150508, end: 20150904
  137. SENNA [Concomitant]
     Active Substance: SENNA LEAF\SENNOSIDES\SENNOSIDES A AND B
     Indication: PRODUCT USED FOR UNKNOWN INDICATION
  138. PIRITON [Concomitant]
     Active Substance: CHLORPHENIRAMINE MALEATE
     Indication: RASH
     Dosage: 5 MILLIGRAM, PRN
     Route: 048
     Dates: start: 20150725
  139. CAPECITABINE. [Suspect]
     Active Substance: CAPECITABINE
     Indication: PRODUCT USED FOR UNKNOWN INDICATION
  140. CAPECITABINE. [Suspect]
     Active Substance: CAPECITABINE
     Indication: PRODUCT USED FOR UNKNOWN INDICATION

REACTIONS (33)
  - Diarrhoea [Recovered/Resolved]
  - Muscle spasms [Unknown]
  - Rash [Recovered/Resolved]
  - Depressed mood [Not Recovered/Not Resolved]
  - Diarrhoea [Recovered/Resolved]
  - Nausea [Recovered/Resolved]
  - Dizziness [Unknown]
  - Headache [Unknown]
  - Nausea [Recovered/Resolved]
  - Lacrimation increased [Not Recovered/Not Resolved]
  - Seizure [Unknown]
  - Headache [Recovered/Resolved]
  - Vaginal discharge [Recovered/Resolved]
  - Constipation [Recovered/Resolved]
  - Poor peripheral circulation [Unknown]
  - Nasopharyngitis [Recovered/Resolved]
  - Fatigue [Not Recovered/Not Resolved]
  - Cough [Recovered/Resolved]
  - Oropharyngeal pain [Recovered/Resolved]
  - Hiccups [Recovered/Resolved]
  - Nail disorder [Recovered/Resolved]
  - Weight decreased [Unknown]
  - Neuralgia [Not Recovered/Not Resolved]
  - Left ventricular dysfunction [Not Recovered/Not Resolved]
  - Mucosal inflammation [Unknown]
  - Neuropathy peripheral [Not Recovered/Not Resolved]
  - Palpitations [Not Recovered/Not Resolved]
  - Alopecia [Unknown]
  - Abdominal pain [Unknown]
  - Nail infection [Recovered/Resolved]
  - Chest pain [Recovered/Resolved]
  - Muscle twitching [Unknown]
  - Urinary tract infection [Recovered/Resolved]
